FAERS Safety Report 24292463 (Version 1)
Quarter: 2024Q3

REPORT INFORMATION
  Report Type: Report from Study
  Country: CN (occurrence: PK)
  Receive Date: 20240906
  Receipt Date: 20240906
  Transmission Date: 20241017
  Serious: Yes (Other)
  Sender: JOHNSON AND JOHNSON
  Company Number: CN-JNJFOC-20240908448

PATIENT

DRUGS (10)
  1. BEDAQUILINE [Suspect]
     Active Substance: BEDAQUILINE
     Indication: Tuberculosis
     Route: 048
  2. PYRAZINAMIDE [Concomitant]
     Active Substance: PYRAZINAMIDE
  3. PARA-AMINOSALICYLIC ACID [Concomitant]
     Active Substance: AMINOSALICYLIC ACID
  4. CYCLOSERINE [Concomitant]
     Active Substance: CYCLOSERINE
  5. LINEZOLID [Concomitant]
     Active Substance: LINEZOLID
  6. PYRIDOXINE [Concomitant]
     Active Substance: PYRIDOXINE
  7. PYRAZINAMIDE [Concomitant]
     Active Substance: PYRAZINAMIDE
  8. CLOFAZIMINE [Concomitant]
     Active Substance: CLOFAZIMINE
  9. AMIKACIN [Concomitant]
     Active Substance: AMIKACIN
  10. ETHAMBUTOL [Concomitant]
     Active Substance: ETHAMBUTOL HYDROCHLORIDE

REACTIONS (15)
  - Neuropathy peripheral [Unknown]
  - Ototoxicity [Unknown]
  - Hepatotoxicity [Unknown]
  - Visual impairment [Unknown]
  - Nausea [Unknown]
  - Vomiting [Unknown]
  - Arthralgia [Unknown]
  - Mental disorder [Unknown]
  - Gastritis [Unknown]
  - Auditory disorder [Unknown]
  - Rash [Unknown]
  - Headache [Unknown]
  - Gastrointestinal disorder [Unknown]
  - Diarrhoea [Unknown]
  - Decreased appetite [Unknown]
